FAERS Safety Report 7405360-5 (Version None)
Quarter: 2011Q2

REPORT INFORMATION
  Report Type: 
  Country: None (occurrence: None)
  Receive Date: 20110401
  Receipt Date: 20110315
  Transmission Date: 20111010
  Serious: Yes (Hospitalization, Other)
  Sender: FDA-Public Use
  Company Number: M1101359

PATIENT
  Age: 62 Year
  Sex: Female

DRUGS (5)
  1. NARCAN [Suspect]
     Indication: OVERDOSE
     Dates: start: 20110215, end: 20110215
  2. LEVOTHYROXINE (LEVOTHYROXINE) [Concomitant]
  3. LORTAB [Concomitant]
  4. PACERONE [Suspect]
     Indication: ATRIAL FIBRILLATION
     Dosage: 4 IN 1 D
     Dates: start: 20110128, end: 20110215
  5. KADIAN [Concomitant]

REACTIONS (14)
  - CONVULSION [None]
  - MUSCLE SPASMS [None]
  - EPISTAXIS [None]
  - VISUAL IMPAIRMENT [None]
  - NERVOUSNESS [None]
  - WEIGHT INCREASED [None]
  - DYSGEUSIA [None]
  - MULTIPLE DRUG OVERDOSE [None]
  - HEART RATE DECREASED [None]
  - DIZZINESS [None]
  - IRRITABILITY [None]
  - HAEMOPTYSIS [None]
  - FEELING COLD [None]
  - BLINDNESS TRANSIENT [None]
